FAERS Safety Report 14075892 (Version 1)
Quarter: 2017Q4

REPORT INFORMATION
  Report Type: Spontaneous
  Country: US (occurrence: US)
  Receive Date: 20171010
  Receipt Date: 20171010
  Transmission Date: 20180321
  Serious: No
  Sender: FDA-Public Use
  Company Number: US-MYLANLABS-2017M1007330

PATIENT
  Age: 61 Year
  Sex: Female

DRUGS (2)
  1. LOXAPINE CAPSULES, USP [Suspect]
     Active Substance: LOXAPINE
     Indication: ANXIETY
     Dosage: 5 MG, BID
     Route: 048
     Dates: start: 201701
  2. LOXAPINE CAPSULES, USP [Suspect]
     Active Substance: LOXAPINE
     Indication: OFF LABEL USE

REACTIONS (1)
  - Insomnia [Not Recovered/Not Resolved]

NARRATIVE: CASE EVENT DATE: 201701
